FAERS Safety Report 13524322 (Version 1)
Quarter: 2017Q2

REPORT INFORMATION
  Report Type: Spontaneous
  Country: US (occurrence: US)
  Receive Date: 20170508
  Receipt Date: 20170508
  Transmission Date: 20170830
  Serious: Yes (Other)
  Sender: FDA-Public Use
  Company Number: US-ARALEZ PHARMACEUTICALS RD INC.-ARA-TP-US-2017-138

PATIENT
  Age: 70 Year
  Sex: Female
  Weight: 65.38 kg

DRUGS (22)
  1. TOPROL XL [Suspect]
     Active Substance: METOPROLOL SUCCINATE
     Indication: HEART RATE
     Route: 048
  2. DIAZEPAM. [Concomitant]
     Active Substance: DIAZEPAM
     Indication: INSOMNIA
  3. DIAZEPAM. [Concomitant]
     Active Substance: DIAZEPAM
     Indication: SEIZURE
  4. VITAMIN D 3 [Concomitant]
     Indication: SUPPLEMENTATION THERAPY
  5. CRESTOR [Concomitant]
     Active Substance: ROSUVASTATIN CALCIUM
     Indication: BLOOD CHOLESTEROL
     Route: 048
     Dates: start: 2003
  6. CLONIDINE. [Concomitant]
     Active Substance: CLONIDINE
     Indication: BLOOD PRESSURE MEASUREMENT
     Route: 048
     Dates: start: 20121024
  7. HYDRALAZINE [Concomitant]
     Active Substance: HYDRALAZINE HYDROCHLORIDE
     Indication: BLOOD PRESSURE MANAGEMENT
     Route: 048
     Dates: start: 20120714
  8. PLAVIX [Concomitant]
     Active Substance: CLOPIDOGREL BISULFATE
     Indication: RENAL DISORDER
     Route: 048
     Dates: start: 2007
  9. DEXILANT [Concomitant]
     Active Substance: DEXLANSOPRAZOLE
     Indication: GASTROOESOPHAGEAL REFLUX DISEASE
     Route: 048
  10. EDECRIN [Concomitant]
     Active Substance: ETHACRYNIC ACID
     Indication: FLUID RETENTION
     Route: 048
  11. LYRICA [Concomitant]
     Active Substance: PREGABALIN
     Indication: FIBROMYALGIA
     Route: 048
  12. FIORICET [Concomitant]
     Active Substance: ACETAMINOPHEN\BUTALBITAL\CAFFEINE
     Indication: MIGRAINE
     Route: 048
  13. BIOTENE NOS [Concomitant]
     Active Substance: CETYLPYRIDINIUM CHLORIDE OR SODIUM FLUORIDE OR SODIUM MONOFLUOROPHOSPHATE OR GLUCOSE OXIDASE\LACTOFERRIN\LACTOPEROXIDASE BOVINE\LYSOZYME
     Indication: HAIR DISORDER
  14. VITAMIN D 3 [Concomitant]
     Indication: SUPPLEMENTATION THERAPY
  15. NEXIUM [Concomitant]
     Active Substance: ESOMEPRAZOLE MAGNESIUM
     Indication: GASTROOESOPHAGEAL REFLUX DISEASE
     Route: 048
  16. SPIRONOLACTONE. [Concomitant]
     Active Substance: SPIRONOLACTONE
     Indication: BLOOD PRESSURE MEASUREMENT
     Route: 048
     Dates: start: 2012
  17. DIAZEPAM. [Concomitant]
     Active Substance: DIAZEPAM
     Indication: DEPRESSION
  18. OMEGA [Concomitant]
     Active Substance: CONVALLARIA MAJALIS\CRATAEGUS LAEVIGATA LEAF\PROXYPHYLLINE
     Indication: BLOOD CHOLESTEROL
     Route: 048
  19. COQ10 [Concomitant]
     Active Substance: UBIDECARENONE
     Indication: ASTHENIA
  20. CHROMIUM PICOLINATE [Concomitant]
     Active Substance: CHROMIUM PICOLINATE
     Indication: BLOOD GLUCOSE FLUCTUATION
  21. DIAZEPAM. [Concomitant]
     Active Substance: DIAZEPAM
     Indication: STRESS
  22. VITAMIN C WITH ROSE HIPS [Concomitant]
     Indication: GASTROOESOPHAGEAL REFLUX DISEASE
     Route: 048

REACTIONS (33)
  - Intracranial aneurysm [Unknown]
  - Hypertension [Unknown]
  - Cardiomegaly [Unknown]
  - Sinus bradycardia [Unknown]
  - Empty sella syndrome [Unknown]
  - Alveolar osteitis [Unknown]
  - Amnesia [Unknown]
  - Eye irritation [Unknown]
  - Biopsy lung [Unknown]
  - Off label use [Unknown]
  - Hypercholesterolaemia [Unknown]
  - Renal artery stenosis [Unknown]
  - Haemorrhage [Unknown]
  - Flank pain [Unknown]
  - Blood pressure inadequately controlled [Unknown]
  - Diarrhoea [Unknown]
  - Hypoglycaemia [Recovered/Resolved]
  - Histrionic personality disorder [Unknown]
  - Hypertension [Unknown]
  - Multiple drug therapy [Unknown]
  - Depression [Unknown]
  - Arteriosclerosis [Unknown]
  - Sleep disorder [Unknown]
  - Weight decreased [Unknown]
  - Mood altered [Unknown]
  - Pneumonia [Unknown]
  - Idiopathic pulmonary fibrosis [Unknown]
  - Corneal abrasion [Unknown]
  - Vomiting [Unknown]
  - Hypercholesterolaemia [Unknown]
  - Type 2 diabetes mellitus [Unknown]
  - Hypertension [Unknown]
  - Muscle spasms [Unknown]

NARRATIVE: CASE EVENT DATE: 1988
